FAERS Safety Report 10154118 (Version 3)
Quarter: 2014Q2

REPORT INFORMATION
  Report Type: Spontaneous
  Country: US (occurrence: None)
  Receive Date: 20140502
  Receipt Date: 20140516
  Transmission Date: 20141212
  Serious: Yes (Other)
  Sender: FDA-Public Use
  Company Number: UTC-047907

PATIENT
  Age: 51 Year
  Sex: Female
  Weight: 50.8 kg

DRUGS (2)
  1. TYVASO [Suspect]
     Indication: COR PULMONALE CHRONIC
     Route: 055
     Dates: start: 20140411, end: 201404
  2. ADCIRCA (TADALAFIL) [Concomitant]

REACTIONS (4)
  - Hypoacusis [None]
  - Vision blurred [None]
  - Therapy cessation [None]
  - Drug intolerance [None]
